FAERS Safety Report 11662574 (Version 1)
Quarter: 2015Q4

REPORT INFORMATION
  Report Type: Spontaneous
  Country: US (occurrence: US)
  Receive Date: 20151027
  Receipt Date: 20151027
  Transmission Date: 20160304
  Serious: No
  Sender: FDA-Public Use
  Company Number: US-MEDA-2014050058

PATIENT
  Sex: Female

DRUGS (5)
  1. ASTEPRO [Suspect]
     Active Substance: AZELASTINE HYDROCHLORIDE
     Indication: RHINITIS ALLERGIC
     Dates: start: 201405
  2. CLARINEX [Concomitant]
     Active Substance: DESLORATADINE
     Indication: HYPERSENSITIVITY
  3. ALLEGRA-D [Concomitant]
     Active Substance: FEXOFENADINE\PSEUDOEPHEDRINE
     Indication: HYPERSENSITIVITY
     Route: 048
  4. AMLODIPINE [Concomitant]
     Active Substance: AMLODIPINE BESYLATE
     Indication: HYPERTENSION
     Route: 048
  5. ASTEPRO [Suspect]
     Active Substance: AZELASTINE HYDROCHLORIDE
     Indication: NASAL CONGESTION
     Dates: start: 201405

REACTIONS (3)
  - Sinus congestion [Recovering/Resolving]
  - Nasal congestion [Recovering/Resolving]
  - Condition aggravated [Recovering/Resolving]

NARRATIVE: CASE EVENT DATE: 201405
